FAERS Safety Report 14642171 (Version 2)
Quarter: 2018Q2

REPORT INFORMATION
  Report Type: Report from Study
  Country: US (occurrence: US)
  Receive Date: 20180315
  Receipt Date: 20180402
  Transmission Date: 20180711
  Serious: Yes (Hospitalization)
  Sender: FDA-Public Use
  Company Number: US-GILEAD-2018-0325657

PATIENT
  Age: 4 Year
  Sex: Male
  Weight: 15.7 kg

DRUGS (9)
  1. SILDENAFIL. [Concomitant]
     Active Substance: SILDENAFIL
  2. LACTULOSE. [Concomitant]
     Active Substance: LACTULOSE
  3. AMBRISENTAN [Suspect]
     Active Substance: AMBRISENTAN
     Indication: PULMONARY ARTERIAL HYPERTENSION
     Dosage: 5 MG, QD
     Route: 065
     Dates: start: 20170810
  4. KEPPRA [Concomitant]
     Active Substance: LEVETIRACETAM
  5. ALBUTEROL                          /00139501/ [Concomitant]
     Active Substance: ALBUTEROL
  6. OMEPRAZOLE. [Concomitant]
     Active Substance: OMEPRAZOLE
  7. PULMICORT TURBUHALER [Concomitant]
     Active Substance: BUDESONIDE
  8. OXYGEN. [Concomitant]
     Active Substance: OXYGEN
  9. OXCARBAZEPINE. [Concomitant]
     Active Substance: OXCARBAZEPINE

REACTIONS (7)
  - Rhinorrhoea [Unknown]
  - Hypoxia [Recovered/Resolved]
  - Dyspnoea at rest [Not Recovered/Not Resolved]
  - Cough [Unknown]
  - Off label use [Not Recovered/Not Resolved]
  - Oxygen saturation decreased [Not Recovered/Not Resolved]
  - Corona virus infection [Recovered/Resolved]

NARRATIVE: CASE EVENT DATE: 20170810
